FAERS Safety Report 4855409-9 (Version None)
Quarter: 2005Q4

REPORT INFORMATION
  Report Type: 
  Country: None (occurrence: None)
  Receive Date: 20051125
  Receipt Date: 20050308
  Transmission Date: 20060501
  Serious: Yes (Other)
  Sender: FDA-Public Use
  Company Number: US-JNJFOC-20050101710

PATIENT
  Age: 48 Year
  Sex: Female

DRUGS (2)
  1. LEVAQUIN [Suspect]
     Indication: SINUSITIS
     Dosage: 1 IN 1 DAY
     Dates: start: 20041222, end: 20041222
  2. NASONEX [Concomitant]

REACTIONS (1)
  - ANAPHYLACTIC REACTION [None]
